FAERS Safety Report 5075233-4 (Version None)
Quarter: 2006Q3

REPORT INFORMATION
  Report Type: 
  Country: None (occurrence: None)
  Receive Date: 20060809
  Receipt Date: 20060724
  Transmission Date: 20061208
  Serious: Yes (Hospitalization)
  Sender: FDA-Public Use
  Company Number: PHBS2006JP11146

PATIENT
  Age: 54 Year
  Sex: Male

DRUGS (1)
  1. VOLTAREN [Suspect]
     Indication: PYREXIA
     Dosage: 50 MG/DAY
     Route: 054
     Dates: start: 20060720, end: 20060720

REACTIONS (5)
  - BLOOD PRESSURE DECREASED [None]
  - BODY TEMPERATURE DECREASED [None]
  - LOSS OF CONSCIOUSNESS [None]
  - MICTURITION URGENCY [None]
  - SHOCK [None]
